FAERS Safety Report 7228087-1 (Version None)
Quarter: 2011Q1

REPORT INFORMATION
  Report Type: 
  Country: None (occurrence: None)
  Receive Date: 20110114
  Receipt Date: 20110104
  Transmission Date: 20110831
  Serious: Yes (Hospitalization, Other)
  Sender: FDA-Public Use
  Company Number: US-BAYER-201017237NA

PATIENT
  Sex: Female

DRUGS (7)
  1. LYRICA [Concomitant]
  2. OMEPRAZOLE [Concomitant]
  3. PRILOSEC [Concomitant]
  4. PAXIL [Concomitant]
  5. BETASERON [Suspect]
     Indication: RELAPSING-REMITTING MULTIPLE SCLEROSIS
     Dosage: BETAJECT
     Route: 058
     Dates: start: 20091119
  6. TRAZODONE [Concomitant]
  7. SYNTHROID [Concomitant]

REACTIONS (14)
  - HEPATIC ENZYME INCREASED [None]
  - MEMORY IMPAIRMENT [None]
  - PARAESTHESIA ORAL [None]
  - HYPOAESTHESIA ORAL [None]
  - HAEMOGLOBIN DECREASED [None]
  - ATRIAL FIBRILLATION [None]
  - MENORRHAGIA [None]
  - MIGRAINE [None]
  - DYSPNOEA [None]
  - HEART RATE INCREASED [None]
  - DISTURBANCE IN ATTENTION [None]
  - VAGINAL HAEMORRHAGE [None]
  - MUSCULAR WEAKNESS [None]
  - FATIGUE [None]
